FAERS Safety Report 7168709-7 (Version None)
Quarter: 2010Q4

REPORT INFORMATION
  Report Type: 
  Country: None (occurrence: None)
  Receive Date: 20101216
  Receipt Date: 20100122
  Transmission Date: 20110411
  Serious: No
  Sender: FDA-Public Use
  Company Number: US-AMGEN-KDL388892

PATIENT

DRUGS (1)
  1. ENBREL [Suspect]
     Indication: JUVENILE ARTHRITIS
     Dosage: 50 MG, QWK
     Route: 058
     Dates: start: 20041101

REACTIONS (10)
  - EYE PAIN [None]
  - EYE SWELLING [None]
  - FATIGUE [None]
  - GLOSSODYNIA [None]
  - HEADACHE [None]
  - INFECTION [None]
  - JUVENILE ARTHRITIS [None]
  - NASOPHARYNGITIS [None]
  - STRESS [None]
  - SWOLLEN TONGUE [None]
